FAERS Safety Report 11342146 (Version 1)
Quarter: 2015Q3

REPORT INFORMATION
  Report Type: Spontaneous
  Country: CA (occurrence: CA)
  Receive Date: 20150805
  Receipt Date: 20150805
  Transmission Date: 20151125
  Serious: Yes (Other)
  Sender: FDA-Public Use
  Company Number: CA-JNJFOC-20150720585

PATIENT
  Age: 29 Year
  Sex: Female
  Weight: 54.89 kg

DRUGS (1)
  1. MICRONOR [Suspect]
     Active Substance: NORETHINDRONE
     Indication: CONTRACEPTION
     Route: 048

REACTIONS (10)
  - Fatigue [Unknown]
  - Depressed mood [Unknown]
  - Asthenia [Unknown]
  - Food craving [Unknown]
  - Dizziness [Unknown]
  - Weight increased [Unknown]
  - Vulvovaginal dryness [Unknown]
  - Chest pain [Unknown]
  - Loss of libido [Unknown]
  - Heart rate increased [Unknown]
